FAERS Safety Report 14061583 (Version 1)
Quarter: 2017Q4

REPORT INFORMATION
  Report Type: Spontaneous
  Country: US (occurrence: US)
  Receive Date: 20171009
  Receipt Date: 20171009
  Transmission Date: 20180321
  Serious: No
  Sender: FDA-Public Use
  Company Number: PHEH2017US032172

PATIENT
  Sex: Female
  Weight: 77.98 kg

DRUGS (1)
  1. NEO AND POLY B SULFATES + HYDROCORTISONE [Suspect]
     Active Substance: BACITRACIN\NEOMYCIN\POLYMYXIN B
     Indication: EAR INFECTION
     Dosage: 4 GTT, QD
     Route: 001
     Dates: start: 20170926

REACTIONS (2)
  - Eye irritation [Recovering/Resolving]
  - Incorrect route of drug administration [Unknown]
